FAERS Safety Report 4698743-8 (Version None)
Quarter: 2005Q2

REPORT INFORMATION
  Report Type: 
  Country: None (occurrence: None)
  Receive Date: 20050621
  Receipt Date: 20050607
  Transmission Date: 20051028
  Serious: Yes (Other)
  Sender: FDA-Public Use
  Company Number: 2005-0008289

PATIENT
  Age: 34 Year
  Sex: Male
  Weight: 56 kg

DRUGS (9)
  1. EMTRIVA [Suspect]
     Indication: HIV INFECTION
     Dosage: 200 MG, 1 IN 1 D, ORAL
     Route: 048
     Dates: start: 20050422, end: 20050422
  2. VIREAD [Suspect]
     Indication: HIV INFECTION
     Dosage: 300 MG, 1 IN 1 D, ORAL
     Route: 048
     Dates: start: 20050422, end: 20050425
  3. CO-TRIMOXAZOLE (CO-TRIMOXAZOLE) [Suspect]
     Indication: PNEUMOCYSTIS JIROVECI INFECTION
     Dosage: 1 DOSAGE FORMS, 1 IN 1 D, ORAL
     Route: 048
     Dates: start: 20050408, end: 20050426
  4. CO-TRIMOXAZOLE (CO-TRIMOXAZOLE) [Suspect]
     Indication: PNEUMONIA
     Dosage: 1 DOSAGE FORMS, 1 IN 1 D, ORAL
     Route: 048
     Dates: start: 20050408, end: 20050426
  5. CO-TRIMOXAZOLE (CO-TRIMOXAZOLE) [Suspect]
     Indication: PROPHYLAXIS
     Dosage: 1 DOSAGE FORMS, 1 IN 1 D, ORAL
     Route: 048
     Dates: start: 20050408, end: 20050426
  6. EFAVIRENZ [Concomitant]
  7. AZITHROMYCIN [Concomitant]
  8. FLUCONAZOLE [Concomitant]
  9. ETHAMBUTOL (ETHAMBUTOL) [Concomitant]

REACTIONS (8)
  - BODY TEMPERATURE INCREASED [None]
  - ERYTHEMA [None]
  - MOUTH ULCERATION [None]
  - PALLOR [None]
  - PRURITUS [None]
  - RASH MACULO-PAPULAR [None]
  - TUBERCULOSIS [None]
  - URTICARIA [None]
